FAERS Safety Report 14028182 (Version 1)
Quarter: 2017Q3

REPORT INFORMATION
  Report Type: Spontaneous
  Country: US (occurrence: US)
  Receive Date: 20170930
  Receipt Date: 20170930
  Transmission Date: 20171128
  Serious: No
  Sender: FDA-Public Use
  Company Number: None

PATIENT
  Age: 25 Year
  Sex: Female
  Weight: 63 kg

DRUGS (2)
  1. TAZAROTENE CREAM .1% [Suspect]
     Active Substance: TAZAROTENE
     Indication: ACNE
     Dosage: ?          QUANTITY:60 TOPICAL CREAM;?
     Route: 061
     Dates: start: 20170511, end: 20170930
  2. TAZAROTENE CREAM .1% [Suspect]
     Active Substance: TAZAROTENE
     Indication: SKIN WRINKLING
     Dosage: ?          QUANTITY:60 TOPICAL CREAM;?
     Route: 061
     Dates: start: 20170511, end: 20170930

REACTIONS (4)
  - Dry skin [None]
  - Drug ineffective [None]
  - Product substitution issue [None]
  - Dermatitis [None]

NARRATIVE: CASE EVENT DATE: 20170815
